FAERS Safety Report 13201440 (Version 1)
Quarter: 2017Q1

REPORT INFORMATION
  Report Type: Spontaneous
  Country: ES (occurrence: ES)
  Receive Date: 20170209
  Receipt Date: 20170209
  Transmission Date: 20170428
  Serious: Yes (Hospitalization)
  Sender: FDA-Public Use
  Company Number: ES-AMGEN-ESPSP2017019752

PATIENT
  Age: 72 Year
  Sex: Male
  Weight: 72 kg

DRUGS (5)
  1. VECTIBIX [Suspect]
     Active Substance: PANITUMUMAB
     Indication: COLORECTAL ADENOCARCINOMA
     Dosage: 474 MG EVERY 14 DAYS
     Route: 042
     Dates: start: 20161129, end: 20170117
  2. 5 FU [Suspect]
     Active Substance: FLUOROURACIL
     Indication: COLORECTAL ADENOCARCINOMA
     Dosage: 764 + 4600 MG
     Route: 042
     Dates: start: 20161129
  3. OXALIPLATINO [Suspect]
     Active Substance: OXALIPLATIN
     Dosage: 155.55 MG, UNK
     Route: 065
     Dates: start: 20170117
  4. OXALIPLATINO [Suspect]
     Active Substance: OXALIPLATIN
     Indication: COLORECTAL ADENOCARCINOMA
     Dosage: 162.35 MG, UNK
     Route: 042
     Dates: start: 20161129
  5. 5 FU [Suspect]
     Active Substance: FLUOROURACIL
     Dosage: 732 + 3300 MG
     Route: 065
     Dates: start: 20170117

REACTIONS (1)
  - Campylobacter gastroenteritis [Recovered/Resolved]

NARRATIVE: CASE EVENT DATE: 20161230
